FAERS Safety Report 5406014-7 (Version None)
Quarter: 2007Q3

REPORT INFORMATION
  Report Type: 
  Country: None (occurrence: None)
  Receive Date: 20070806
  Receipt Date: 20070801
  Transmission Date: 20080115
  Serious: Yes (Death)
  Sender: FDA-Public Use
  Company Number: A0627722A

PATIENT
  Age: 32 Year
  Sex: Male
  Weight: 101.4 kg

DRUGS (3)
  1. PAXIL CR [Suspect]
     Indication: DEPRESSION
     Dosage: 37.5MG PER DAY
     Route: 048
     Dates: start: 20040726, end: 20041111
  2. VIAGRA [Concomitant]
     Indication: ERECTILE DYSFUNCTION
     Dates: start: 20040209
  3. LEVITRA [Concomitant]
     Indication: ERECTILE DYSFUNCTION
     Dates: start: 20040726

REACTIONS (5)
  - ANXIETY [None]
  - COMPLETED SUICIDE [None]
  - DRUG INEFFECTIVE [None]
  - MOOD SWINGS [None]
  - SUICIDAL IDEATION [None]
